FAERS Safety Report 6665825-0 (Version None)
Quarter: 2010Q1

REPORT INFORMATION
  Report Type: 
  Country: None (occurrence: None)
  Receive Date: 20100329
  Receipt Date: 20091120
  Transmission Date: 20100710
  Serious: No
  Sender: FDA-Public Use
  Company Number: 2009-00755

PATIENT
  Age: 60 Year
  Sex: Female
  Weight: 64.4108 kg

DRUGS (1)
  1. COLD REMEDY NASAL GEL [Suspect]
     Dosage: SPORADIC : ABOUT A YEAR AGO-JUN2009
     Dates: end: 20090601

REACTIONS (1)
  - ANOSMIA [None]
